FAERS Safety Report 6106984-8 (Version None)
Quarter: 2009Q1

REPORT INFORMATION
  Report Type: 
  Country: None (occurrence: None)
  Receive Date: 20090306
  Receipt Date: 20090306
  Transmission Date: 20090719
  Serious: Yes (Life-Threatening)
  Sender: FDA-Public Use
  Company Number: None

PATIENT
  Sex: Male
  Weight: 90.2658 kg

DRUGS (1)
  1. CHANTIX [Suspect]
     Indication: TOBACCO ABUSE
     Dosage: 0.5 MG QD X 3D PO 0.5 MG BID X 4D PO
     Route: 048
     Dates: start: 20090210, end: 20090213

REACTIONS (4)
  - CHROMATURIA [None]
  - DIZZINESS [None]
  - MYALGIA [None]
  - TREMOR [None]
